FAERS Safety Report 18126956 (Version 3)
Quarter: 2020Q3

REPORT INFORMATION
  Report Type: Spontaneous
  Country: JP (occurrence: JP)
  Receive Date: 20200810
  Receipt Date: 20200907
  Transmission Date: 20201103
  Serious: Yes (Other)
  Sender: FDA-Public Use
  Company Number: JP-BAXTER-2020BAX015977

PATIENT
  Age: 39 Year
  Sex: Male
  Weight: 64 kg

DRUGS (16)
  1. OXIFAST [Suspect]
     Active Substance: OXYCODONE
     Route: 042
  2. OXIFAST [Suspect]
     Active Substance: OXYCODONE
     Route: 042
  3. FLUCONAZOLE. [Concomitant]
     Active Substance: FLUCONAZOLE
     Indication: PRODUCT USED FOR UNKNOWN INDICATION
     Route: 065
  4. IFOSFAMIDE FOR INJECTION [Suspect]
     Active Substance: IFOSFAMIDE
     Indication: CUTANEOUS T-CELL LYMPHOMA
     Dosage: DEVIC THERAPY
     Route: 065
  5. OXIFAST [Suspect]
     Active Substance: OXYCODONE
     Route: 042
  6. OXYCODONE HYDROCHLORIDE HYDRATE [Suspect]
     Active Substance: OXYCODONE HYDROCHLORIDE
     Indication: CANCER PAIN
     Dosage: SUSTAINED?RELEASE TABLET
     Route: 048
  7. DEXAMETHASONE. [Concomitant]
     Active Substance: DEXAMETHASONE
     Indication: CUTANEOUS T-CELL LYMPHOMA
     Route: 065
  8. ETOPOSIDE. [Concomitant]
     Active Substance: ETOPOSIDE
     Indication: CUTANEOUS T-CELL LYMPHOMA
     Route: 065
  9. OXIFAST [Suspect]
     Active Substance: OXYCODONE
     Indication: CANCER PAIN
     Route: 042
  10. OXIFAST [Suspect]
     Active Substance: OXYCODONE
     Route: 042
  11. ACETAMINOPHEN. [Concomitant]
     Active Substance: ACETAMINOPHEN
     Indication: CANCER PAIN
     Route: 065
  12. CARBOPLATIN. [Concomitant]
     Active Substance: CARBOPLATIN
     Indication: CUTANEOUS T-CELL LYMPHOMA
     Route: 065
  13. FLURBIPROFEN AXETIL [Concomitant]
     Active Substance: FLURBIPROFEN AXETIL
     Indication: CANCER PAIN
     Route: 065
  14. OXIFAST [Suspect]
     Active Substance: OXYCODONE
     Route: 042
  15. MESNA. [Concomitant]
     Active Substance: MESNA
     Indication: CUTANEOUS T-CELL LYMPHOMA
     Dosage: DEVIC THERAPY
     Route: 065
  16. LOXOPROFEN [Concomitant]
     Active Substance: LOXOPROFEN
     Indication: CANCER PAIN
     Route: 065

REACTIONS (3)
  - Drug interaction [Recovered/Resolved]
  - Respiratory depression [Recovered/Resolved]
  - Tumour lysis syndrome [Recovering/Resolving]
